FAERS Safety Report 20168585 (Version 2)
Quarter: 2022Q2

REPORT INFORMATION
  Report Type: Report from Study
  Country: JP (occurrence: JP)
  Receive Date: 20211210
  Receipt Date: 20220406
  Transmission Date: 20220721
  Serious: Yes (Life-Threatening, Other)
  Sender: FDA-Public Use
  Company Number: JP-SA-2021SA409514

PATIENT
  Age: 77 Year
  Sex: Female
  Weight: 41 kg

DRUGS (48)
  1. ISATUXIMAB [Suspect]
     Active Substance: ISATUXIMAB
     Indication: Plasma cell myeloma
     Dosage: 10 MG/KG, 1X
     Route: 041
     Dates: start: 20201118, end: 20201118
  2. ISATUXIMAB [Suspect]
     Active Substance: ISATUXIMAB
     Dosage: 10 MG/KG, QW
     Route: 041
     Dates: start: 20200930, end: 20201021
  3. ISATUXIMAB [Suspect]
     Active Substance: ISATUXIMAB
     Dosage: 10 MG/KG, QOW
     Route: 041
     Dates: start: 20210114, end: 20210128
  4. ISATUXIMAB [Suspect]
     Active Substance: ISATUXIMAB
     Dosage: 10 MG/KG, QOW
     Route: 041
     Dates: start: 20210218, end: 20210415
  5. ISATUXIMAB [Suspect]
     Active Substance: ISATUXIMAB
     Dosage: 10 MG/KG, 1X
     Route: 041
     Dates: start: 20210430, end: 20210430
  6. ISATUXIMAB [Suspect]
     Active Substance: ISATUXIMAB
     Dosage: 10 MG/KG, QOW
     Route: 041
     Dates: start: 20210513, end: 20210708
  7. ISATUXIMAB [Suspect]
     Active Substance: ISATUXIMAB
     Dosage: 10 MG/KG, 1X
     Route: 041
     Dates: start: 20210721, end: 20210721
  8. ISATUXIMAB [Suspect]
     Active Substance: ISATUXIMAB
     Dosage: 10 MG/KG, QOW
     Route: 041
     Dates: start: 20210805, end: 20211111
  9. ISATUXIMAB [Suspect]
     Active Substance: ISATUXIMAB
     Dosage: 10 MG/KG, 1X
     Route: 041
     Dates: start: 20211126, end: 20211126
  10. DEXAMETHASONE [Suspect]
     Active Substance: DEXAMETHASONE
     Indication: Plasma cell myeloma
     Dosage: DAILY DOSAGE: 20 MG
     Route: 065
     Dates: start: 20201118, end: 20201119
  11. DEXAMETHASONE [Suspect]
     Active Substance: DEXAMETHASONE
     Dosage: DAILY DOSAGE: 20 MG
     Route: 065
     Dates: start: 20200930, end: 20201001
  12. DEXAMETHASONE [Suspect]
     Active Substance: DEXAMETHASONE
     Dosage: DAILY DOSAGE: 20 MG
     Route: 065
     Dates: start: 20201007, end: 20201008
  13. DEXAMETHASONE [Suspect]
     Active Substance: DEXAMETHASONE
     Dosage: DAILY DOSAGE: 20 MG
     Route: 065
     Dates: start: 20201014, end: 20201015
  14. DEXAMETHASONE [Suspect]
     Active Substance: DEXAMETHASONE
     Dosage: 20 MG, QOW
     Route: 065
     Dates: start: 20210114, end: 20210128
  15. DEXAMETHASONE [Suspect]
     Active Substance: DEXAMETHASONE
     Dosage: 20 MG, QOW
     Route: 065
     Dates: start: 20210218, end: 20210415
  16. DEXAMETHASONE [Suspect]
     Active Substance: DEXAMETHASONE
     Dosage: 20 MG, 1X
     Route: 065
     Dates: start: 20210430, end: 20210430
  17. DEXAMETHASONE [Suspect]
     Active Substance: DEXAMETHASONE
     Dosage: 20 MG, QOW
     Route: 065
     Dates: start: 20210513, end: 20210708
  18. DEXAMETHASONE [Suspect]
     Active Substance: DEXAMETHASONE
     Dosage: 20 MG, 1X
     Route: 065
     Dates: start: 20210721, end: 20210721
  19. DEXAMETHASONE [Suspect]
     Active Substance: DEXAMETHASONE
     Dosage: 20 MG, QOW
     Route: 065
     Dates: start: 20210805, end: 20211111
  20. DEXAMETHASONE [Suspect]
     Active Substance: DEXAMETHASONE
     Dosage: 20 MG, 1X
     Route: 065
     Dates: start: 20211126, end: 20211126
  21. POMALIDOMIDE [Suspect]
     Active Substance: POMALIDOMIDE
     Indication: Plasma cell myeloma
     Dosage: DAILY DOSAGE: 4 MG
     Route: 065
     Dates: start: 20201118, end: 20201121
  22. POMALIDOMIDE [Suspect]
     Active Substance: POMALIDOMIDE
     Dosage: DAILY DOSAGE: 4 MG
     Route: 065
     Dates: start: 20200930, end: 20201020
  23. POMALIDOMIDE [Suspect]
     Active Substance: POMALIDOMIDE
     Dosage: DAILY DOSAGE: 4 MG
     Route: 065
     Dates: start: 20210114, end: 20210120
  24. POMALIDOMIDE [Suspect]
     Active Substance: POMALIDOMIDE
     Dosage: DAILY DOSAGE: 4 MG
     Route: 065
     Dates: start: 20210128, end: 20210203
  25. POMALIDOMIDE [Suspect]
     Active Substance: POMALIDOMIDE
     Dosage: DAILY DOSAGE: 4 MG
     Route: 065
     Dates: start: 20210218, end: 20210224
  26. POMALIDOMIDE [Suspect]
     Active Substance: POMALIDOMIDE
     Dosage: DAILY DOSAGE: 4 MG
     Route: 065
     Dates: start: 20210304, end: 20210310
  27. POMALIDOMIDE [Suspect]
     Active Substance: POMALIDOMIDE
     Dosage: DAILY DOSAGE: 4 MG
     Route: 065
     Dates: start: 20210318, end: 20210324
  28. POMALIDOMIDE [Suspect]
     Active Substance: POMALIDOMIDE
     Dosage: DAILY DOSAGE: 4 MG
     Route: 065
     Dates: start: 20210401, end: 20210407
  29. POMALIDOMIDE [Suspect]
     Active Substance: POMALIDOMIDE
     Dosage: DAILY DOSAGE: 4 MG
     Route: 065
     Dates: start: 20210415, end: 20210421
  30. POMALIDOMIDE [Suspect]
     Active Substance: POMALIDOMIDE
     Dosage: DAILY DOSAGE: 4 MG
     Route: 065
     Dates: start: 20210430, end: 20210506
  31. POMALIDOMIDE [Suspect]
     Active Substance: POMALIDOMIDE
     Dosage: DAILY DOSAGE: 4 MG
     Route: 065
     Dates: start: 20210513, end: 20210519
  32. POMALIDOMIDE [Suspect]
     Active Substance: POMALIDOMIDE
     Dosage: DAILY DOSAGE: 4 MG
     Route: 065
     Dates: start: 20210527, end: 20210602
  33. POMALIDOMIDE [Suspect]
     Active Substance: POMALIDOMIDE
     Dosage: DAILY DOSAGE: 4 MG
     Route: 065
     Dates: start: 20210610, end: 20210616
  34. POMALIDOMIDE [Suspect]
     Active Substance: POMALIDOMIDE
     Dosage: DAILY DOSAGE: 4 MG
     Route: 065
     Dates: start: 20210624, end: 20210630
  35. POMALIDOMIDE [Suspect]
     Active Substance: POMALIDOMIDE
     Dosage: DAILY DOSAGE: 4 MG
     Route: 065
     Dates: start: 20210708, end: 20210714
  36. POMALIDOMIDE [Suspect]
     Active Substance: POMALIDOMIDE
     Dosage: DAILY DOSAGE: 4 MG
     Route: 065
     Dates: start: 20210721, end: 20210727
  37. POMALIDOMIDE [Suspect]
     Active Substance: POMALIDOMIDE
     Dosage: DAILY DOSAGE: 4 MG
     Route: 065
     Dates: start: 20210805, end: 20210811
  38. POMALIDOMIDE [Suspect]
     Active Substance: POMALIDOMIDE
     Dosage: DAILY DOSAGE: 4 MG
     Route: 065
     Dates: start: 20210819, end: 20210825
  39. POMALIDOMIDE [Suspect]
     Active Substance: POMALIDOMIDE
     Dosage: DAILY DOSAGE: 4 MG
     Route: 065
     Dates: start: 20210902, end: 20210908
  40. POMALIDOMIDE [Suspect]
     Active Substance: POMALIDOMIDE
     Dosage: DAILY DOSAGE: 4 MG
     Route: 065
     Dates: start: 20210916, end: 20210922
  41. POMALIDOMIDE [Suspect]
     Active Substance: POMALIDOMIDE
     Dosage: DAILY DOSAGE: 4 MG
     Route: 065
     Dates: start: 20210930, end: 20211006
  42. POMALIDOMIDE [Suspect]
     Active Substance: POMALIDOMIDE
     Dosage: DAILY DOSAGE: 4 MG
     Route: 065
     Dates: start: 20211014, end: 20211020
  43. POMALIDOMIDE [Suspect]
     Active Substance: POMALIDOMIDE
     Dosage: DAILY DOSAGE: 4 MG
     Route: 065
     Dates: start: 20211028, end: 20211103
  44. POMALIDOMIDE [Suspect]
     Active Substance: POMALIDOMIDE
     Dosage: DAILY DOSAGE: 4 MG
     Route: 065
     Dates: start: 20211111, end: 20211117
  45. POMALIDOMIDE [Suspect]
     Active Substance: POMALIDOMIDE
     Dosage: DAILY DOSAGE: 4 MG
     Route: 065
     Dates: start: 20211126, end: 20211202
  46. SAXIZON [Concomitant]
     Active Substance: HYDROCORTISONE SODIUM SUCCINATE
     Indication: Prophylaxis
     Dosage: 500 MG, QW
     Route: 065
     Dates: start: 20200930, end: 20201014
  47. SAXIZON [Concomitant]
     Active Substance: HYDROCORTISONE SODIUM SUCCINATE
     Dosage: 500 MG, 1X
     Route: 065
     Dates: start: 20201118, end: 20201118
  48. SAXIZON [Concomitant]
     Active Substance: HYDROCORTISONE SODIUM SUCCINATE
     Dosage: 500 MG, QOW
     Route: 065
     Dates: start: 20210114, end: 20210128

REACTIONS (4)
  - Acute respiratory distress syndrome [Recovered/Resolved]
  - Dyspnoea [Recovered/Resolved]
  - Pneumocystis jirovecii pneumonia [Recovered/Resolved]
  - Pyrexia [Recovered/Resolved]

NARRATIVE: CASE EVENT DATE: 20201122
